FAERS Safety Report 6348286-0 (Version None)
Quarter: 2009Q3

REPORT INFORMATION
  Report Type: 
  Country: None (occurrence: None)
  Receive Date: 20090908
  Receipt Date: 20090825
  Transmission Date: 20100115
  Serious: Yes (Other)
  Sender: FDA-Public Use
  Company Number: SG-1170722

PATIENT
  Age: 37 Year
  Sex: Male

DRUGS (2)
  1. CHLORAMPHENICOL [Suspect]
     Indication: CONJUNCTIVITIS
     Dosage: 1GTT Q2H OU X 24H, THEN 1 GGT Q6H OU X 4D OPHTHALMIC
     Route: 047
  2. RABEPRZOLE (RABEPRAZOLE) [Concomitant]

REACTIONS (1)
  - HEPATITIS ACUTE [None]
